FAERS Safety Report 10012765 (Version 1)
Quarter: 2014Q1

REPORT INFORMATION
  Report Type: Spontaneous
  Country: GB (occurrence: GB)
  Receive Date: 20140314
  Receipt Date: 20140314
  Transmission Date: 20141002
  Serious: Yes (Hospitalization, Other)
  Sender: FDA-Public Use
  Company Number: GB-PFIZER INC-2014071293

PATIENT
  Age: 80 Year
  Sex: Female
  Weight: 74 kg

DRUGS (12)
  1. PREGABALIN [Suspect]
     Indication: NEURALGIA
     Dosage: 250MG (50MG IN THE MORNING, 100MG AT NOON AND 100MG AT NIGHT)
     Route: 048
  2. AMITRIPTYLINE [Suspect]
     Dosage: 25 MG, UNK
     Route: 048
  3. ALENDRONIC ACID [Concomitant]
     Dosage: 70 MG, WEEKLY
  4. AMLODIPINE [Concomitant]
     Dosage: 5 MG, DAILY
  5. ASPIRIN [Concomitant]
     Dosage: 75 MG, DAILY
  6. BISOPROLOL [Concomitant]
     Dosage: 5 MG, DAILY
  7. HYDROXYZINE [Concomitant]
     Dosage: 50 MG 1X/DAY (AT NIGHT)
  8. LAXIDO [Concomitant]
     Dosage: 2 DF 1X/DAY (1-2 AT NIGHT)
  9. LEVOTHYROXINE [Concomitant]
     Dosage: 75 UG 1X/DAY (IN THE MORNING)
  10. OMEPRAZOLE [Concomitant]
     Dosage: 20 MG 1X/DAY (IN THE MORNING)
  11. SENNA [Concomitant]
     Dosage: 15 MG 1X/DAY (AT NIGHT)
  12. SIMVASTATIN [Concomitant]
     Dosage: 20 MG 1X/DAY (AT NIGHT)

REACTIONS (2)
  - Fall [Recovering/Resolving]
  - Supraventricular tachycardia [Recovering/Resolving]
